FAERS Safety Report 7985295-X (Version None)
Quarter: 2011Q4

REPORT INFORMATION
  Report Type: 
  Country: None (occurrence: None)
  Receive Date: 20111214
  Receipt Date: 20111207
  Transmission Date: 20120403
  Serious: Yes (Other)
  Sender: FDA-Public Use
  Company Number: 2011SP056998

PATIENT
  Sex: Female

DRUGS (2)
  1. CHORIONIC GONADOTROPIN [Suspect]
     Indication: PRODUCT USED FOR UNKNOWN INDICATION
  2. FOLLITROPIN BETA (FOLLITROPIN BETA /01348901/) [Suspect]
     Indication: PRODUCT USED FOR UNKNOWN INDICATION

REACTIONS (2)
  - ABORTION SPONTANEOUS [None]
  - OVARIAN HYPERSTIMULATION SYNDROME [None]
